FAERS Safety Report 8546410 (Version 2)
Quarter: 2013Q1

REPORT INFORMATION
  Report Type: Spontaneous
  Country: US (occurrence: US)
  Receive Date: 20120504
  Receipt Date: 20130103
  Transmission Date: 20140127
  Serious: Yes (Hospitalization)
  Sender: FDA-Public Use
  Company Number: US-BAYER-2012-041629

PATIENT
  Age: 35 Year
  Sex: Female
  Weight: 63.49 kg

DRUGS (14)
  1. YAZ [Suspect]
     Indication: CONTRACEPTION
     Dosage: UNK
     Dates: start: 200808, end: 201002
  2. YAZ [Suspect]
     Indication: ACNE
  3. YAZ [Suspect]
     Indication: HORMONE LEVEL ABNORMAL
  4. MIGRAINE MEDICATIONS [Concomitant]
  5. PHENERGAN [Concomitant]
     Indication: PAIN
  6. PHENERGAN [Concomitant]
     Indication: NAUSEA
  7. PHENERGAN [Concomitant]
     Indication: VOMITING
  8. PROTONIX [Concomitant]
  9. FLAGYL [Concomitant]
     Indication: VAGINITIS BACTERIAL
  10. MIDOL [Concomitant]
     Indication: PAIN
  11. MIDOL [Concomitant]
     Indication: NAUSEA
  12. MIDOL [Concomitant]
     Indication: VOMITING
  13. CEPHALEXIN [Concomitant]
     Dosage: 500 MG, UNK
  14. VANDAZOLE VAG GEL 0.75% [Concomitant]

REACTIONS (8)
  - Cholecystitis acute [None]
  - Gallbladder disorder [None]
  - Blood cholesterol increased [None]
  - Pain [None]
  - Injury [None]
  - General physical health deterioration [None]
  - Emotional distress [None]
  - Anxiety [None]
